FAERS Safety Report 4348821-8 (Version None)
Quarter: 2004Q2

REPORT INFORMATION
  Report Type: 
  Country: None (occurrence: None)
  Receive Date: 20040423
  Receipt Date: 20040407
  Transmission Date: 20050107
  Serious: Yes (Hospitalization)
  Sender: FDA-Public Use
  Company Number: 1583

PATIENT
  Age: 73 Year
  Sex: Male
  Weight: 53 kg

DRUGS (11)
  1. TARGRETIN [Suspect]
     Indication: MYCOSIS FUNGOIDES
     Dosage: 300 MG/M^2 QD PO
     Route: 048
     Dates: start: 20030422, end: 20030429
  2. ASPIRIN [Concomitant]
  3. ATORVASTATIN [Concomitant]
  4. BIPHASIC INSULINS [Concomitant]
  5. FORMOTEROL [Concomitant]
  6. GLIMEPIRIDE [Concomitant]
  7. IRON SUPPLEMENT [Concomitant]
  8. METOPROLOL [Concomitant]
  9. TIOTROPIUM BROMIDE [Concomitant]
  10. TORSEMIDE [Concomitant]
  11. VHW OINTMENT [Concomitant]

REACTIONS (8)
  - ACIDOSIS [None]
  - ACUTE MYOCARDIAL INFARCTION [None]
  - HAEMODIALYSIS [None]
  - LEFT VENTRICULAR FAILURE [None]
  - MITRAL VALVE INCOMPETENCE [None]
  - PULMONARY HYPERTENSION [None]
  - RENAL FAILURE ACUTE [None]
  - TRICUSPID VALVE INCOMPETENCE [None]
